FAERS Safety Report 14402538 (Version 1)
Quarter: 2018Q1

REPORT INFORMATION
  Report Type: Spontaneous
  Country: JP (occurrence: JP)
  Receive Date: 20180117
  Receipt Date: 20180117
  Transmission Date: 20180509
  Serious: Yes (Other)
  Sender: FDA-Public Use
  Company Number: JP-JNJFOC-20171201782

PATIENT
  Age: 69 Year
  Sex: Male

DRUGS (6)
  1. REMINYL [Suspect]
     Active Substance: GALANTAMINE
     Indication: DEMENTIA ALZHEIMER^S TYPE
     Route: 048
     Dates: start: 20170710
  2. ISOSORBIDE DINITRATE. [Suspect]
     Active Substance: ISOSORBIDE DINITRATE
     Indication: PRINZMETAL ANGINA
     Route: 048
     Dates: start: 20120308
  3. BAYASPIRIN [Suspect]
     Active Substance: ASPIRIN
     Indication: PRINZMETAL ANGINA
     Route: 048
     Dates: start: 20120308
  4. NICORANDIL [Suspect]
     Active Substance: NICORANDIL
     Indication: PRINZMETAL ANGINA
     Route: 048
     Dates: start: 20120308
  5. NIFEDIPINE. [Suspect]
     Active Substance: NIFEDIPINE
     Indication: HYPERTENSION
     Route: 048
     Dates: start: 20120308
  6. REMINYL [Suspect]
     Active Substance: GALANTAMINE
     Indication: DEMENTIA ALZHEIMER^S TYPE
     Route: 048
     Dates: start: 20170606, end: 20170709

REACTIONS (2)
  - Empyema [Unknown]
  - Headache [Recovered/Resolved]

NARRATIVE: CASE EVENT DATE: 2017
